FAERS Safety Report 7546980-7 (Version None)
Quarter: 2011Q2

REPORT INFORMATION
  Report Type: 
  Country: None (occurrence: None)
  Receive Date: 20110614
  Receipt Date: 20110606
  Transmission Date: 20111010
  Serious: Yes (Death, Hospitalization)
  Sender: FDA-Public Use
  Company Number: GXBR2011US02263

PATIENT
  Sex: Male
  Weight: 63.492 kg

DRUGS (9)
  1. OMEPRAZOLE [Concomitant]
     Dosage: UNK MG, UNK
  2. ZYPREXA [Concomitant]
     Dosage: UNK MG, UNK
  3. POTASSIUM CHLORIDE [Concomitant]
     Dosage: UNK MG, UNK
  4. HYDROCODONE BITARTRATE AND ACETAMINOPHEN [Concomitant]
     Dosage: UNK DF, UNK
  5. DOCUSATE [Concomitant]
     Dosage: UNK MG, UNK
  6. METOPROLOL TARTRATE [Suspect]
     Indication: HYPERTENSION
     Dosage: 50 MG, BID
     Route: 048
     Dates: start: 20080915
  7. LOVENOX [Concomitant]
     Dosage: UNK MG, UNK
  8. COUMADIN [Concomitant]
     Dosage: UNK MG, UNK
  9. VALPROIC ACID [Concomitant]
     Dosage: UNK MG, UNK

REACTIONS (5)
  - GASTROINTESTINAL HAEMORRHAGE [None]
  - COLONIC POLYP [None]
  - HAEMATEMESIS [None]
  - ASTHENIA [None]
  - HAEMATOCHEZIA [None]
